FAERS Safety Report 17385892 (Version 2)
Quarter: 2020Q1

REPORT INFORMATION
  Report Type: Spontaneous
  Country: ES (occurrence: ES)
  Receive Date: 20200206
  Receipt Date: 20200210
  Transmission Date: 20200409
  Serious: Yes (Hospitalization)
  Sender: FDA-Public Use
  Company Number: ES-US-PROVELL PHARMACEUTICALS LLC-E2B_90074467

PATIENT
  Age: 17 Year
  Sex: Female
  Weight: 47 kg

DRUGS (4)
  1. EUTIROX [Suspect]
     Active Substance: LEVOTHYROXINE SODIUM
     Indication: HYPOTHYROIDISM
     Dosage: 4 TABLETS EVERY 7 DAYS (MONDAY TO THURSDAY)
     Dates: start: 20190924
  2. NOVORAPID [Interacting]
     Active Substance: INSULIN ASPART
     Indication: TYPE 1 DIABETES MELLITUS
     Dosage: 15UI AT BREAKFAST, 15UI AT LUNCH, 15UI AT DINNER
     Dates: start: 20190121, end: 20191202
  3. EUTIROX [Interacting]
     Active Substance: LEVOTHYROXINE SODIUM
     Dosage: 3 TABLETS EVERY 7 DAYS (FRIDAY TO SUNDAY)
     Dates: start: 20190924
  4. LANTUS [Interacting]
     Active Substance: INSULIN GLARGINE
     Indication: TYPE 1 DIABETES MELLITUS
     Dosage: 20UI AT DINNER
     Dates: start: 20190528, end: 20191202

REACTIONS (1)
  - Diabetic ketoacidosis [Recovered/Resolved]

NARRATIVE: CASE EVENT DATE: 20191024
